FAERS Safety Report 13925048 (Version 1)
Quarter: 2017Q3

REPORT INFORMATION
  Report Type: Spontaneous
  Country: FR (occurrence: FR)
  Receive Date: 20170831
  Receipt Date: 20170831
  Transmission Date: 20171127
  Serious: Yes (Other)
  Sender: FDA-Public Use
  Company Number: FR-MERCK KGAA-2025372

PATIENT
  Sex: Female

DRUGS (1)
  1. NOVOTHYROX [Suspect]
     Active Substance: LEVOTHYROXINE SODIUM
     Indication: POST PROCEDURAL HYPOTHYROIDISM

REACTIONS (15)
  - Musculoskeletal pain [Unknown]
  - Nausea [Unknown]
  - Paraesthesia [Unknown]
  - Vertigo [Unknown]
  - Vision blurred [Unknown]
  - Alopecia [Unknown]
  - Headache [Unknown]
  - Vomiting [Unknown]
  - Myalgia [Unknown]
  - Dyspnoea [Unknown]
  - Fatigue [Unknown]
  - Arrhythmia [Unknown]
  - Blood thyroid stimulating hormone abnormal [Unknown]
  - Arthralgia [Unknown]
  - Hypoaesthesia [Unknown]
